FAERS Safety Report 4892294-3 (Version None)
Quarter: 2006Q1

REPORT INFORMATION
  Report Type: 
  Country: None (occurrence: None)
  Receive Date: 20060125
  Receipt Date: 20060125
  Transmission Date: 20060701
  Serious: Yes (Hospitalization)
  Sender: FDA-Public Use
  Company Number: None

PATIENT
  Age: 32 Year
  Sex: Male

DRUGS (6)
  1. METHOTREXATE [Suspect]
     Indication: ACUTE LYMPHOCYTIC LEUKAEMIA
     Dosage: 2000 MG IV
     Route: 042
     Dates: start: 20051008, end: 20051009
  2. CIPRO [Concomitant]
  3. ACYCLOVIR [Concomitant]
  4. FLUCONAZOLE [Concomitant]
  5. ATIVAN [Concomitant]
  6. DECADRON [Concomitant]

REACTIONS (1)
  - BLOOD CREATININE INCREASED [None]
